FAERS Safety Report 5112707-1 (Version None)
Quarter: 2006Q3

REPORT INFORMATION
  Report Type: 
  Country: None (occurrence: None)
  Receive Date: 20060922
  Receipt Date: 20060824
  Transmission Date: 20061208
  Serious: Yes (Other)
  Sender: FDA-Public Use
  Company Number: JP-JPN-A200603287

PATIENT
  Age: 51 Year
  Sex: Male

DRUGS (3)
  1. PAXIL [Suspect]
     Dosage: 40MG PER DAY
     Route: 048
     Dates: start: 20060221, end: 20060801
  2. TOFRANIL [Suspect]
     Dosage: 20MG THREE TIMES PER DAY
  3. LIMAS [Concomitant]
     Dosage: 600MG PER DAY
     Route: 048

REACTIONS (6)
  - DYSKINESIA [None]
  - FLUSHING [None]
  - HYPERHIDROSIS [None]
  - MYOCLONUS [None]
  - PYREXIA [None]
  - SEROTONIN SYNDROME [None]
